FAERS Safety Report 6327022-8 (Version None)
Quarter: 2009Q3

REPORT INFORMATION
  Report Type: 
  Country: None (occurrence: None)
  Receive Date: 20090818
  Receipt Date: 20090610
  Transmission Date: 20100115
  Serious: No
  Sender: FDA-Public Use
  Company Number: WAES 0906USA01867

PATIENT
  Age: 67 Year
  Sex: Female

DRUGS (2)
  1. JANUVIA [Suspect]
     Dosage: 100 MG/PO
     Route: 048
     Dates: start: 20090101, end: 20090601
  2. METFORMIN HCL [Concomitant]

REACTIONS (2)
  - HOT FLUSH [None]
  - INAPPROPRIATE SCHEDULE OF DRUG ADMINISTRATION [None]
